FAERS Safety Report 12622116 (Version 1)
Quarter: 2016Q3

REPORT INFORMATION
  Report Type: Report from Study
  Country: ES (occurrence: ES)
  Receive Date: 20160804
  Receipt Date: 20160804
  Transmission Date: 20161109
  Serious: Yes (Life-Threatening, Hospitalization)
  Sender: FDA-Public Use
  Company Number: ES-ARENAPROD-ARNA0001103

PATIENT
  Age: 47 Year
  Sex: Female

DRUGS (1)
  1. APD811 OR PLACEBO [Suspect]
     Active Substance: RALINEPAG
     Indication: PULMONARY ARTERIAL HYPERTENSION
     Route: 048
     Dates: start: 20160208, end: 20160712

REACTIONS (6)
  - Bradycardia [Recovered/Resolved]
  - Discomfort [None]
  - Chest pain [None]
  - Procedural complication [None]
  - Cardiac arrest [Recovered/Resolved]
  - Electrocardiogram QT prolonged [Not Recovered/Not Resolved]

NARRATIVE: CASE EVENT DATE: 20160713
